FAERS Safety Report 4426489-X (Version None)
Quarter: 2004Q3

REPORT INFORMATION
  Report Type: 
  Country: None (occurrence: None)
  Receive Date: 20040816
  Receipt Date: 20040802
  Transmission Date: 20050211
  Serious: Yes (Other)
  Sender: FDA-Public Use
  Company Number: US-JNJFOC-20040608098

PATIENT
  Sex: Female
  Weight: 64.41 kg

DRUGS (5)
  1. REMICADE [Suspect]
     Route: 042
  2. REMICADE [Suspect]
     Indication: RHEUMATOID ARTHRITIS
     Route: 042
  3. ALLEGRA [Concomitant]
     Indication: PREMEDICATION
     Route: 049
  4. SOLU-CORTEF [Concomitant]
     Indication: PREMEDICATION
  5. TYELNOL [Concomitant]
     Indication: PREMEDICATION

REACTIONS (4)
  - CHEST PAIN [None]
  - HYPERHIDROSIS [None]
  - INFUSION RELATED REACTION [None]
  - TACHYPNOEA [None]
